FAERS Safety Report 25971078 (Version 1)
Quarter: 2025Q4

REPORT INFORMATION
  Report Type: Spontaneous
  Country: US (occurrence: US)
  Receive Date: 20251028
  Receipt Date: 20251028
  Transmission Date: 20260117
  Serious: No
  Sender: GALDERMA
  Company Number: US-GALDERMA-US2025019675

PATIENT

DRUGS (4)
  1. NEMLUVIO [Suspect]
     Active Substance: NEMOLIZUMAB-ILTO
     Indication: Eczema
     Dosage: 60 MILLIGRAM,LOADING DOSE
     Route: 058
     Dates: start: 20250701, end: 20250701
  2. NEMLUVIO [Suspect]
     Active Substance: NEMOLIZUMAB-ILTO
     Dosage: 30 MILLIGRAM
     Route: 058
     Dates: start: 202508, end: 202508
  3. NEMLUVIO [Suspect]
     Active Substance: NEMOLIZUMAB-ILTO
     Dosage: 30 MILLIGRAM
     Route: 058
     Dates: start: 202509, end: 202509
  4. LEVOTHYROXINE [Concomitant]
     Active Substance: LEVOTHYROXINE
     Indication: Product used for unknown indication
     Dosage: 0.75 MICROGRAM

REACTIONS (4)
  - Eczema [Unknown]
  - Arthralgia [Unknown]
  - Eye swelling [Unknown]
  - Swelling face [Unknown]

NARRATIVE: CASE EVENT DATE: 20250101
